FAERS Safety Report 15632677 (Version 1)
Quarter: 2018Q4

REPORT INFORMATION
  Report Type: Spontaneous
  Country: US (occurrence: US)
  Receive Date: 20181113
  Receipt Date: 20181113
  Transmission Date: 20190205
  Serious: Yes (Other)
  Sender: FDA-Public Use
  Company Number: None

PATIENT
  Age: 64 Year
  Sex: Male
  Weight: 99 kg

DRUGS (11)
  1. ALPRAZOLAM. [Concomitant]
     Active Substance: ALPRAZOLAM
  2. MULTIVITAMIN [Concomitant]
     Active Substance: VITAMINS
  3. LOSARTAN. [Concomitant]
     Active Substance: LOSARTAN
  4. SIMVASTATIN. [Concomitant]
     Active Substance: SIMVASTATIN
  5. RED KRILL OIL [Concomitant]
  6. ERLEADA [Suspect]
     Active Substance: APALUTAMIDE
     Indication: PROSTATE CANCER
     Route: 048
     Dates: start: 20180618, end: 20181113
  7. ACYCLOVIR. [Concomitant]
     Active Substance: ACYCLOVIR
  8. CALCIUM [Concomitant]
     Active Substance: CALCIUM
  9. METFORMIN [Concomitant]
     Active Substance: METFORMIN HYDROCHLORIDE
  10. LUPRON DEPOT [Concomitant]
     Active Substance: LEUPROLIDE ACETATE
  11. NAPROXEN. [Concomitant]
     Active Substance: NAPROXEN

REACTIONS (1)
  - Groin pain [None]

NARRATIVE: CASE EVENT DATE: 20181113
